FAERS Safety Report 23133473 (Version 2)
Quarter: 2023Q4

REPORT INFORMATION
  Report Type: Spontaneous
  Country: FR (occurrence: None)
  Receive Date: 20231101
  Receipt Date: 20231121
  Transmission Date: 20240110
  Serious: Yes (Hospitalization)
  Sender: FDA-Public Use
  Company Number: FR-ROCHE-3449453

PATIENT
  Age: 18 Year
  Sex: Male

DRUGS (11)
  1. BACTRIM [Suspect]
     Active Substance: SULFAMETHOXAZOLE\TRIMETHOPRIM
     Indication: Prophylaxis
     Dosage: 800/160 MG TABLET
     Route: 048
     Dates: start: 20230926, end: 20231013
  2. DOXORUBICIN HYDROCHLORIDE [Suspect]
     Active Substance: DOXORUBICIN HYDROCHLORIDE
     Indication: B-cell lymphoma
     Dosage: POSOLOGY NOT REPORTED C1 26/09/2023 C2 12/10/2023
     Route: 042
     Dates: start: 20230926
  3. DOXORUBICIN HYDROCHLORIDE [Suspect]
     Active Substance: DOXORUBICIN HYDROCHLORIDE
     Dosage: POSOLOGY NOT REPORTED C1 26/09/2023 C2 12/10/2023
     Route: 042
     Dates: start: 20231012
  4. VINCRISTINE SULFATE [Suspect]
     Active Substance: VINCRISTINE SULFATE
     Indication: B-cell lymphoma
     Dosage: POSOLOGY NOT REPORTED C1 26/09/2023 C2 12/10/2023
     Route: 042
     Dates: start: 20230926
  5. VINCRISTINE SULFATE [Suspect]
     Active Substance: VINCRISTINE SULFATE
     Dosage: POSOLOGY NOT REPORTED C1 26/09/2023 C2 12/10/2023
     Route: 042
     Dates: start: 20231012
  6. PREDNISONE [Suspect]
     Active Substance: PREDNISONE
     Indication: B-cell lymphoma
     Dosage: POSOLOGY NOT REPORTED C1 26/09/2023 C2 12/10/2023
     Route: 048
     Dates: start: 20230926
  7. PREDNISONE [Suspect]
     Active Substance: PREDNISONE
     Dosage: POSOLOGY NOT REPORTED C1 26/09/2023 C2 12/10/2023
     Route: 048
     Dates: start: 20231012
  8. RITUXIMAB [Suspect]
     Active Substance: RITUXIMAB
     Indication: B-cell lymphoma
     Dosage: POSOLOGY NOT REPORTED C1 26/09/2023 C2 12/10/2023
     Route: 041
     Dates: start: 20230926
  9. RITUXIMAB [Suspect]
     Active Substance: RITUXIMAB
     Dosage: POSOLOGY NOT REPORTED C1 26/09/2023 C2 12/10/2023
     Route: 041
     Dates: start: 20231012
  10. CYCLOPHOSPHAMIDE [Suspect]
     Active Substance: CYCLOPHOSPHAMIDE
     Indication: B-cell lymphoma
     Dosage: POSOLOGY NOT REPORTED C1 26/09/2023 C2 12/10/2023
     Route: 042
     Dates: start: 20230926
  11. CYCLOPHOSPHAMIDE [Suspect]
     Active Substance: CYCLOPHOSPHAMIDE
     Dosage: POSOLOGY NOT REPORTED C1 26/09/2023 C2 12/10/2023
     Route: 042
     Dates: start: 20231012

REACTIONS (1)
  - Pancreatitis acute [Recovered/Resolved]

NARRATIVE: CASE EVENT DATE: 20231013
